FAERS Safety Report 5903554-9 (Version None)
Quarter: 2008Q3

REPORT INFORMATION
  Report Type: 
  Country: None (occurrence: None)
  Receive Date: 20080930
  Receipt Date: 20080918
  Transmission Date: 20090109
  Serious: Yes (Death, Hospitalization)
  Sender: FDA-Public Use
  Company Number: US-PFIZER INC-2008079013

PATIENT
  Sex: Male

DRUGS (1)
  1. VFEND [Suspect]
     Indication: LIVER ABSCESS
     Dates: start: 20080606

REACTIONS (2)
  - DEATH [None]
  - ILL-DEFINED DISORDER [None]
